FAERS Safety Report 7383343-1 (Version None)
Quarter: 2011Q1

REPORT INFORMATION
  Report Type: 
  Country: None (occurrence: None)
  Receive Date: 20110325
  Receipt Date: 20110325
  Transmission Date: 20110831
  Serious: Yes (Hospitalization)
  Sender: FDA-Public Use
  Company Number: None

PATIENT
  Age: 82 Year
  Sex: Male
  Weight: 88 kg

DRUGS (9)
  1. ASPIRIN [Concomitant]
  2. KLOR-CON [Concomitant]
  3. ENALAPRIL MALEATE [Concomitant]
  4. PREVACID [Concomitant]
  5. INDAPAMIDE [Concomitant]
  6. MEFOXIN [Suspect]
     Indication: ANTIBIOTIC PROPHYLAXIS
     Dosage: 1GM PREOP INFUSION IV RECENT
     Route: 042
  7. MEFOXIN [Suspect]
     Indication: PREOPERATIVE CARE
     Dosage: 1GM PREOP INFUSION IV RECENT
     Route: 042
  8. FLOMAX [Concomitant]
  9. ANESTHESIA MEDS [Concomitant]

REACTIONS (1)
  - RASH [None]
